FAERS Safety Report 6977139-X (Version None)
Quarter: 2010Q3

REPORT INFORMATION
  Report Type: 
  Country: None (occurrence: None)
  Receive Date: 20100824
  Receipt Date: 20100621
  Transmission Date: 20110219
  Serious: No
  Sender: FDA-Public Use
  Company Number: 310444

PATIENT
  Age: 66 Year
  Sex: Male

DRUGS (2)
  1. VICTOZA [Suspect]
     Indication: TYPE 2 DIABETES MELLITUS
     Dosage: 1.8 MG, QD, SUBCUTANEOUS
     Route: 058
  2. GLYBURIDE [Concomitant]

REACTIONS (5)
  - ABDOMINAL DISCOMFORT [None]
  - BLOOD GLUCOSE INCREASED [None]
  - DIARRHOEA [None]
  - TREMOR [None]
  - WEIGHT DECREASED [None]
